FAERS Safety Report 8061979-2 (Version None)
Quarter: 2012Q1

REPORT INFORMATION
  Report Type: 
  Country: None (occurrence: None)
  Receive Date: 20120123
  Receipt Date: 20120114
  Transmission Date: 20120608
  Serious: Yes (Other)
  Sender: FDA-Public Use
  Company Number: US-CELGENEUS-163-21880-10062867

PATIENT
  Age: 56 Year
  Sex: Male
  Weight: 79 kg

DRUGS (20)
  1. BEVACIZUMAB [Suspect]
     Dosage: 15 MILLIGRAM/KILOGRAM
     Route: 041
     Dates: start: 20100621, end: 20100621
  2. LEXAPRO [Concomitant]
     Route: 065
  3. PROTONIX [Concomitant]
     Route: 065
  4. NORVASC [Concomitant]
     Route: 065
  5. RESTORIL [Concomitant]
     Route: 065
  6. DOCETAXEL [Suspect]
     Indication: PROSTATE CANCER
     Dosage: 75 MILLIGRAM/SQ. METER
     Route: 041
     Dates: start: 20091222
  7. ZOMETA [Suspect]
     Route: 065
     Dates: start: 20090201
  8. NEURONTIN [Concomitant]
     Route: 065
  9. DOCETAXEL [Suspect]
     Dosage: 75 MILLIGRAM/SQ. METER
     Route: 041
     Dates: start: 20100621, end: 20100621
  10. PREDNISONE TAB [Suspect]
     Dosage: 5 MILLIGRAM
     Route: 048
     Dates: start: 20100621, end: 20100712
  11. CALCIUM [Concomitant]
     Route: 065
  12. LUPRON [Concomitant]
     Route: 065
  13. REVLIMID [Suspect]
     Dosage: 25 MILLIGRAM
     Route: 048
     Dates: start: 20100621, end: 20100704
  14. PREDNISONE TAB [Suspect]
     Indication: PROSTATE CANCER
     Dosage: 5 MILLIGRAM
     Route: 048
     Dates: start: 20091222
  15. OXYCONTIN [Concomitant]
     Route: 065
  16. OXYCODONE HCL [Concomitant]
     Route: 065
  17. VITAMIN D [Concomitant]
     Route: 065
  18. REVLIMID [Suspect]
     Indication: PROSTATE CANCER
     Dosage: 25 MILLIGRAM
     Route: 048
     Dates: start: 20091222
  19. BEVACIZUMAB [Suspect]
     Indication: PROSTATE CANCER
     Dosage: 15 MILLIGRAM/KILOGRAM
     Route: 041
     Dates: start: 20091222
  20. ATIVAN [Concomitant]
     Route: 065

REACTIONS (2)
  - STOMATITIS [None]
  - OSTEONECROSIS [None]
